FAERS Safety Report 13504885 (Version 2)
Quarter: 2017Q4

REPORT INFORMATION
  Report Type: Spontaneous
  Country: US (occurrence: US)
  Receive Date: 20170502
  Receipt Date: 20171024
  Transmission Date: 20180320
  Serious: No
  Sender: FDA-Public Use
  Company Number: US-IMPAX LABORATORIES, INC-2017-IPXL-00508

PATIENT
  Age: 58 Year
  Sex: Female

DRUGS (1)
  1. RYTARY [Suspect]
     Active Substance: CARBIDOPA\LEVODOPA
     Indication: PARKINSON^S DISEASE
     Dosage: 36.25/145 MG, 1 CAPSULE TID
     Route: 048

REACTIONS (5)
  - Confusional state [Recovering/Resolving]
  - Nausea [Recovering/Resolving]
  - Fall [Unknown]
  - Dyskinesia [Unknown]
  - Depression [Recovering/Resolving]
